FAERS Safety Report 6228377-5 (Version None)
Quarter: 2009Q2

REPORT INFORMATION
  Report Type: 
  Country: None (occurrence: None)
  Receive Date: 20090610
  Receipt Date: 20090610
  Transmission Date: 20091009
  Serious: Yes (Hospitalization)
  Sender: FDA-Public Use
  Company Number: None

PATIENT
  Sex: Female
  Weight: 93.18 kg

DRUGS (2)
  1. ERBITUX [Suspect]
  2. CISPLATIN [Suspect]

REACTIONS (4)
  - ANAEMIA [None]
  - CATHETER SEPSIS [None]
  - LEUKOPENIA [None]
  - STAPHYLOCOCCAL INFECTION [None]
